FAERS Safety Report 12241921 (Version 3)
Quarter: 2016Q2

REPORT INFORMATION
  Report Type: Spontaneous
  Country: CZ (occurrence: CZ)
  Receive Date: 20160406
  Receipt Date: 20160502
  Transmission Date: 20160815
  Serious: Yes (Death, Other)
  Sender: FDA-Public Use
  Company Number: CZ-TEVA-649157ISR

PATIENT
  Age: 53 Month
  Sex: Female
  Weight: 2.35 kg

DRUGS (6)
  1. METHOTREXATE [Suspect]
     Active Substance: METHOTREXATE
     Indication: MEDULLOBLASTOMA
     Dosage: 6 MILLIGRAM DAILY;
  2. BEVACIZUMAB [Suspect]
     Active Substance: BEVACIZUMAB
     Indication: MEDULLOBLASTOMA
  3. DOXORUBICIN [Suspect]
     Active Substance: DOXORUBICIN
     Indication: MEDULLOBLASTOMA
     Dosage: INFUSION
  4. IRINOTECAN [Suspect]
     Active Substance: IRINOTECAN
     Indication: MEDULLOBLASTOMA
  5. VINCRISTINE [Suspect]
     Active Substance: VINCRISTINE
     Indication: MEDULLOBLASTOMA
  6. CYTARABINE. [Suspect]
     Active Substance: CYTARABINE
     Indication: MEDULLOBLASTOMA
     Dosage: 2 MG PER KG WAS ADMINISTERED MONTHLY

REACTIONS (11)
  - Sepsis [Recovered/Resolved]
  - Febrile neutropenia [Unknown]
  - Disease recurrence [Fatal]
  - Haemodynamic instability [Recovered/Resolved]
  - Headache [Recovered/Resolved]
  - Toxicity to various agents [Unknown]
  - Psychomotor hyperactivity [Recovered/Resolved]
  - Pancytopenia [Recovered/Resolved]
  - Skin toxicity [Recovered/Resolved]
  - Mucosal toxicity [Recovered/Resolved]
  - Infection [Unknown]
